FAERS Safety Report 10404467 (Version 1)
Quarter: 2014Q1

REPORT INFORMATION
  Report Type: Spontaneous
  Country: US (occurrence: None)
  Receive Date: 20140306
  Receipt Date: 20140306
  Transmission Date: 20141002
  Serious: Yes (Hospitalization, Other)
  Sender: FDA-Public Use
  Company Number: 163-21880-12110168

PATIENT
  Age: 60 Year
  Sex: Female

DRUGS (5)
  1. REVLIMID (LENALIDOMIDE) (15 MILLIGRAM, CAPSULES) [Suspect]
     Indication: PLASMA CELL MYELOMA
     Dosage: 15 MG, 14 IN 14 D, PO
     Route: 048
     Dates: start: 20120925
  2. ASPIRIN (ACETYLSALICYLIC ACID0 (ENTERIC-COATED TABLET) [Concomitant]
  3. CALCIUM (CALCIUM) [Concomitant]
  4. ENOXAPARIN SODIUM (HEPARIN-FRACTION, SODIUM SALT) [Concomitant]
  5. STOOL SOFTENER (DOCUSATE SODIUM) [Concomitant]

REACTIONS (3)
  - Thrombosis [None]
  - Pulmonary thrombosis [None]
  - Deep vein thrombosis [None]
